FAERS Safety Report 8062778-8 (Version None)
Quarter: 2012Q1

REPORT INFORMATION
  Report Type: 
  Country: None (occurrence: None)
  Receive Date: 20120123
  Receipt Date: 20120109
  Transmission Date: 20120608
  Serious: Yes (Other)
  Sender: FDA-Public Use
  Company Number: CA-ELI_LILLY_AND_COMPANY-CA201201002312

PATIENT
  Age: 64 Year
  Sex: Female

DRUGS (11)
  1. ALENDRONATE SODIUM [Concomitant]
  2. ATORVASTATIN [Concomitant]
  3. DICLOFENAC SANDOZ [Concomitant]
  4. CYMBALTA [Suspect]
     Dosage: 60 MG, QD
     Route: 048
  5. CALCITE 500+D [Concomitant]
  6. ESTROGEL [Concomitant]
  7. NEXIUM [Concomitant]
  8. RATIO-DOMPERIDONE [Concomitant]
  9. VENLAFAXINE [Concomitant]
     Dosage: 37.5 MG, QD
     Route: 048
  10. TIMOLOL MALEATE [Concomitant]
  11. ALBUTEROL SULFATE AUTOHALER [Concomitant]

REACTIONS (2)
  - DRUG INTERACTION [None]
  - HYPERTENSION [None]
